FAERS Safety Report 8902462 (Version 1)
Quarter: 2012Q4

REPORT INFORMATION
  Report Type: 
  Country: DE (occurrence: DE)
  Receive Date: 20121112
  Receipt Date: 20121112
  Transmission Date: 20130627
  Serious: Yes (Hospitalization)
  Sender: FDA-Public Use
  Company Number: DE-ELI_LILLY_AND_COMPANY-DE201210009435

PATIENT
  Age: 61 Year
  Sex: Female

DRUGS (4)
  1. FORSTEO [Suspect]
     Indication: OSTEOPOROSIS
     Dosage: UNK
     Route: 058
     Dates: start: 20110124
  2. ENBREL [Concomitant]
     Dosage: UNK
  3. CORTISON [Concomitant]
     Dosage: UNK, prn
  4. DEKRISTOL [Concomitant]
     Dosage: UNK, weekly (1/W)

REACTIONS (5)
  - Lower limb fracture [Unknown]
  - Femur fracture [Unknown]
  - Pelvic fracture [Unknown]
  - Fall [Recovered/Resolved]
  - Knee arthroplasty [Unknown]
